FAERS Safety Report 20401714 (Version 2)
Quarter: 2022Q1

REPORT INFORMATION
  Report Type: Spontaneous
  Country: US (occurrence: US)
  Receive Date: 20220131
  Receipt Date: 20220201
  Transmission Date: 20220423
  Serious: No
  Sender: FDA-Public Use
  Company Number: US-ABBVIE-21K-163-4098477-00

PATIENT
  Sex: Female

DRUGS (1)
  1. HUMIRA [Suspect]
     Active Substance: ADALIMUMAB
     Indication: Ankylosing spondylitis
     Route: 058
     Dates: start: 2019

REACTIONS (5)
  - Spinal fracture [Unknown]
  - Fatigue [Not Recovered/Not Resolved]
  - HLA-B*27 positive [Unknown]
  - Spondylitis [Unknown]
  - Therapeutic response unexpected [Unknown]
